FAERS Safety Report 6324323-4 (Version None)
Quarter: 2009Q3

REPORT INFORMATION
  Report Type: 
  Country: None (occurrence: None)
  Receive Date: 20090824
  Receipt Date: 20090423
  Transmission Date: 20100115
  Serious: No
  Sender: FDA-Public Use
  Company Number: US-ABBOTT-09P-163-0569824-00

PATIENT
  Sex: Female
  Weight: 71.732 kg

DRUGS (10)
  1. NIASPAN [Suspect]
     Indication: BLOOD CHOLESTEROL INCREASED
     Dosage: DAILY AT BEDTIME
     Dates: start: 20090201
  2. LISINOPRIL [Concomitant]
     Indication: DRUG USE FOR UNKNOWN INDICATION
  3. DILTIZEM [Concomitant]
     Indication: DRUG USE FOR UNKNOWN INDICATION
  4. ASPIRIN [Concomitant]
     Indication: DRUG USE FOR UNKNOWN INDICATION
  5. FISH OIL [Concomitant]
     Indication: DRUG USE FOR UNKNOWN INDICATION
  6. BIOTIN [Concomitant]
     Indication: DRUG USE FOR UNKNOWN INDICATION
  7. MUCINEX [Concomitant]
     Indication: DRUG USE FOR UNKNOWN INDICATION
  8. CLARITIN [Concomitant]
     Indication: DRUG USE FOR UNKNOWN INDICATION
  9. CALCIUM [Concomitant]
     Indication: DRUG USE FOR UNKNOWN INDICATION
  10. AMBIEN [Concomitant]
     Indication: DRUG USE FOR UNKNOWN INDICATION

REACTIONS (3)
  - DYSPNOEA [None]
  - FLUSHING [None]
  - HEART RATE IRREGULAR [None]
